FAERS Safety Report 18438792 (Version 1)
Quarter: 2020Q4

REPORT INFORMATION
  Report Type: Spontaneous
  Country: US (occurrence: US)
  Receive Date: 20201029
  Receipt Date: 20201029
  Transmission Date: 20210114
  Serious: No
  Sender: FDA-Public Use
  Company Number: US-009507513-2010USA010241

PATIENT
  Age: 59 Year
  Sex: Female

DRUGS (3)
  1. COZAAR [Suspect]
     Active Substance: LOSARTAN POTASSIUM
     Indication: EJECTION FRACTION
     Dosage: UNK
     Route: 048
  2. SPIRONOLACTONE. [Concomitant]
     Active Substance: SPIRONOLACTONE
  3. CARVEDILOL. [Concomitant]
     Active Substance: CARVEDILOL

REACTIONS (1)
  - Product use in unapproved indication [Unknown]
